FAERS Safety Report 7571870-3 (Version None)
Quarter: 2011Q2

REPORT INFORMATION
  Report Type: 
  Country: None (occurrence: None)
  Receive Date: 20110624
  Receipt Date: 20100519
  Transmission Date: 20111010
  Serious: No
  Sender: FDA-Public Use
  Company Number: A0860422A

PATIENT
  Age: 43 Year
  Sex: Female

DRUGS (4)
  1. SYNTHROID [Concomitant]
  2. MULTI-VITAMIN [Concomitant]
  3. VERAMYST [Suspect]
     Dosage: 1SPR TWICE PER DAY
     Route: 045
     Dates: start: 20100301, end: 20100420
  4. UNKNOWN MEDICATION [Concomitant]

REACTIONS (3)
  - PAIN [None]
  - EAR INFECTION [None]
  - SINUSITIS [None]
